FAERS Safety Report 15323370 (Version 1)
Quarter: 2018Q3

REPORT INFORMATION
  Report Type: Spontaneous
  Country: FI (occurrence: FI)
  Receive Date: 20180827
  Receipt Date: 20180827
  Transmission Date: 20181010
  Serious: Yes (Other)
  Sender: FDA-Public Use
  Company Number: FI-ELI_LILLY_AND_COMPANY-FI201808007426

PATIENT
  Sex: Male

DRUGS (1)
  1. ZYPADHERA [Suspect]
     Active Substance: OLANZAPINE PAMOATE
     Indication: SCHIZOAFFECTIVE DISORDER
     Dosage: 405 MG, OTHER (EVERY 4 WEEKS)
     Route: 030
     Dates: start: 2013

REACTIONS (8)
  - Restless legs syndrome [Unknown]
  - Dysarthria [Unknown]
  - Post-injection delirium sedation syndrome [Unknown]
  - Dyspnoea [Unknown]
  - Heart rate decreased [Unknown]
  - Fatigue [Unknown]
  - Restlessness [Unknown]
  - Anxiety [Unknown]

NARRATIVE: CASE EVENT DATE: 20180815
